FAERS Safety Report 16257200 (Version 3)
Quarter: 2019Q2

REPORT INFORMATION
  Report Type: Report from Study
  Country: None (occurrence: CO)
  Receive Date: 20190430
  Receipt Date: 20190626
  Transmission Date: 20190711
  Serious: Yes (Death, Hospitalization)
  Sender: FDA-Public Use
  Company Number: CO-ABBVIE-19S-036-2763710-00

PATIENT
  Age: 47 Year
  Sex: Female
  Weight: 50 kg

DRUGS (1)
  1. ZEMPLAR [Suspect]
     Active Substance: PARICALCITOL
     Indication: HYPERPARATHYROIDISM SECONDARY
     Dosage: POSTDIALYSIS
     Route: 042
     Dates: start: 20150212, end: 20190328

REACTIONS (5)
  - Death [Fatal]
  - Gastrointestinal disorder [Unknown]
  - Device damage [Unknown]
  - Lung infection [Recovering/Resolving]
  - Back pain [Recovering/Resolving]

NARRATIVE: CASE EVENT DATE: 20190425
